FAERS Safety Report 7903300-3 (Version None)
Quarter: 2011Q4

REPORT INFORMATION
  Report Type: 
  Country: None (occurrence: None)
  Receive Date: 20111109
  Receipt Date: 20111101
  Transmission Date: 20120403
  Serious: Yes (Hospitalization)
  Sender: FDA-Public Use
  Company Number: PR-JNJFOC-20100800633

PATIENT
  Sex: Female
  Weight: 64.86 kg

DRUGS (6)
  1. BUTALBITAL/ACETAMINOPHEN [Suspect]
     Indication: ILL-DEFINED DISORDER
  2. EXTRA STRENGTH TYLENOL [Suspect]
     Indication: HEADACHE
     Route: 065
     Dates: start: 20091228
  3. EXTRA STRENGTH TYLENOL [Suspect]
     Route: 065
  4. PREDNISONE [Concomitant]
  5. PERCOCET [Suspect]
     Indication: ILL-DEFINED DISORDER
  6. PRISTIQ [Concomitant]

REACTIONS (20)
  - ASCITES [None]
  - SPLENOMEGALY [None]
  - VOMITING [None]
  - CHOLANGITIS ACUTE [None]
  - HEPATIC ARTERY STENOSIS [None]
  - URINARY TRACT INFECTION [None]
  - SEPSIS [None]
  - GENERAL PHYSICAL HEALTH DETERIORATION [None]
  - PLEURAL EFFUSION [None]
  - HYPERGLYCAEMIA [None]
  - PRODUCT QUALITY ISSUE [None]
  - NAUSEA [None]
  - INTERNATIONAL NORMALISED RATIO INCREASED [None]
  - ABDOMINAL DISCOMFORT [None]
  - LIVEDO RETICULARIS [None]
  - ACUTE HEPATIC FAILURE [None]
  - DRUG ADMINISTRATION ERROR [None]
  - OVERDOSE [None]
  - GASTRITIS [None]
  - LIVER TRANSPLANT [None]
